FAERS Safety Report 10103750 (Version 2)
Quarter: 2014Q2

REPORT INFORMATION
  Report Type: Other
  Country: US (occurrence: US)
  Receive Date: 20140424
  Receipt Date: 20140618
  Transmission Date: 20141212
  Serious: Yes (Hospitalization, Other)
  Sender: FDA-Public Use
  Company Number: US-GSKPPD-2014GSK001478

PATIENT
  Age: 65 Year
  Sex: Male

DRUGS (5)
  1. AVANDIA [Suspect]
     Indication: DIABETES MELLITUS
     Dosage: TWICE A DAY
     Route: 048
     Dates: start: 20050223, end: 20060224
  2. FUROSEMIDE [Concomitant]
     Dosage: DAILY
     Route: 048
  3. METOPROLOL [Concomitant]
     Dosage: BID
     Route: 048
  4. FELODIPINE [Concomitant]
     Dosage: DAILY
     Route: 048
  5. ASPIRIN [Concomitant]
     Dosage: DAILY
     Route: 048

REACTIONS (2)
  - Vascular graft [Recovered/Resolved]
  - Coronary artery disease [Recovered/Resolved]
